FAERS Safety Report 6980644-3 (Version None)
Quarter: 2010Q3

REPORT INFORMATION
  Report Type: 
  Country: None (occurrence: None)
  Receive Date: 20100914
  Receipt Date: 20100908
  Transmission Date: 20110219
  Serious: Yes (Hospitalization, Disabling)
  Sender: FDA-Public Use
  Company Number: US-B.I. PHARMACEUTICALS,INC./RIDGEFIELD-2010-BP-08302BP

PATIENT
  Sex: Female

DRUGS (3)
  1. MICARDIS [Suspect]
     Indication: HYPERTENSION
     Dosage: 20 MG
     Route: 048
     Dates: start: 20070101, end: 20100601
  2. MICARDIS [Suspect]
     Dosage: 40 MG
     Route: 048
     Dates: start: 20100601
  3. ASPIRIN [Concomitant]
     Indication: ANEURYSM

REACTIONS (6)
  - GAIT DISTURBANCE [None]
  - GASTRIC DISORDER [None]
  - HYPERTENSION [None]
  - PAIN IN EXTREMITY [None]
  - RENAL DISORDER [None]
  - SINUSITIS [None]
